FAERS Safety Report 20546399 (Version 1)
Quarter: 2022Q1

REPORT INFORMATION
  Report Type: Spontaneous
  Country: US (occurrence: None)
  Receive Date: 20220302
  Receipt Date: 20220302
  Transmission Date: 20220424
  Serious: Yes (Other)
  Sender: FDA-Public Use
  Company Number: None

PATIENT
  Age: 52 Year
  Sex: Female
  Weight: 83.2 kg

DRUGS (7)
  1. ETOPOSIDE [Suspect]
     Active Substance: ETOPOSIDE
     Indication: Small cell lung cancer
     Route: 042
     Dates: start: 20220302, end: 20220302
  2. DEXAMETHASONE [Concomitant]
     Active Substance: DEXAMETHASONE
  3. FOSAPREPITANT [Concomitant]
  4. MAGNESIUM SULFATE [Concomitant]
  5. PALONOSETRON [Concomitant]
  6. SODIUM CHLORIDE [Concomitant]
  7. SODIUM CHLORIDE [Concomitant]

REACTIONS (1)
  - Unresponsive to stimuli [None]

NARRATIVE: CASE EVENT DATE: 20220302
